FAERS Safety Report 7792040-X (Version None)
Quarter: 2011Q3

REPORT INFORMATION
  Report Type: 
  Country: None (occurrence: None)
  Receive Date: 20110929
  Receipt Date: 20110915
  Transmission Date: 20111222
  Serious: Yes (Hospitalization, Other)
  Sender: FDA-Public Use
  Company Number: AUR-APL-2009-00147

PATIENT
  Age: 65 Year
  Sex: Female
  Weight: 100 kg

DRUGS (7)
  1. QUINAPRIL HCL [Suspect]
     Indication: PRODUCT USED FOR UNKNOWN INDICATION
  2. ESCITALOPRAM OXALATE [Suspect]
     Indication: PRODUCT USED FOR UNKNOWN INDICATION
  3. VENLAFAXINE [Suspect]
     Indication: PRODUCT USED FOR UNKNOWN INDICATION
  4. ENALAPRIL MALEATE [Suspect]
     Indication: PRODUCT USED FOR UNKNOWN INDICATION
  5. CITALOPRAM HYDROBROMIDE [Suspect]
     Indication: PRODUCT USED FOR UNKNOWN INDICATION
  6. AMITRIPTYLINE HCL [Suspect]
     Indication: PRODUCT USED FOR UNKNOWN INDICATION
  7. ATENOLOL [Suspect]
     Indication: PRODUCT USED FOR UNKNOWN INDICATION

REACTIONS (17)
  - COMA [None]
  - MYDRIASIS [None]
  - CONFUSIONAL STATE [None]
  - CARDIAC ARREST [None]
  - MULTIPLE DRUG OVERDOSE [None]
  - VENTRICULAR TACHYCARDIA [None]
  - CARDIOGENIC SHOCK [None]
  - BALANCE DISORDER [None]
  - UNRESPONSIVE TO STIMULI [None]
  - TOXICITY TO VARIOUS AGENTS [None]
  - RHYTHM IDIOVENTRICULAR [None]
  - CONVULSION [None]
  - RESPIRATORY ARREST [None]
  - PULSELESS ELECTRICAL ACTIVITY [None]
  - HYPOXIC-ISCHAEMIC ENCEPHALOPATHY [None]
  - HYPOTENSION [None]
  - BRADYCARDIA [None]
